FAERS Safety Report 23026576 (Version 1)
Quarter: 2023Q4

REPORT INFORMATION
  Report Type: Spontaneous
  Country: US (occurrence: US)
  Receive Date: 20231004
  Receipt Date: 20231004
  Transmission Date: 20240110
  Serious: Yes (Other)
  Sender: FDA-Public Use
  Company Number: US-drreddys-LIT/USA/23/0178625

PATIENT
  Age: 16 Year
  Sex: Female

DRUGS (2)
  1. FLUMAZENIL [Suspect]
     Active Substance: FLUMAZENIL
     Indication: Overdose
     Route: 042
  2. NALOXONE HYDROCHLORIDE [Suspect]
     Active Substance: NALOXONE HYDROCHLORIDE
     Indication: Overdose

REACTIONS (1)
  - Drug ineffective [Unknown]
